FAERS Safety Report 5354086-0 (Version None)
Quarter: 2007Q2

REPORT INFORMATION
  Report Type: 
  Country: None (occurrence: None)
  Receive Date: 20070612
  Receipt Date: 20070601
  Transmission Date: 20071010
  Serious: Yes (Death)
  Sender: FDA-Public Use
  Company Number: B0460753A

PATIENT
  Age: 59 Year
  Sex: Male
  Weight: 117 kg

DRUGS (6)
  1. AVANDAMET [Suspect]
     Indication: DIABETES MELLITUS NON-INSULIN-DEPENDENT
     Dosage: 1TAB TWICE PER DAY
     Route: 048
     Dates: start: 20050530, end: 20070210
  2. BIPRETERAX [Suspect]
     Indication: HYPERTENSION
     Dosage: 1TAB PER DAY
     Route: 048
     Dates: start: 20040402, end: 20070210
  3. DAONIL [Suspect]
     Indication: DIABETES MELLITUS NON-INSULIN-DEPENDENT
     Dosage: 5MG THREE TIMES PER DAY
     Route: 048
     Dates: start: 20030526, end: 20070210
  4. ASPEGIC 1000 [Concomitant]
     Indication: OSTEOARTHRITIS
     Dosage: 1000MG THREE TIMES PER DAY
     Route: 048
     Dates: start: 20070112, end: 20070131
  5. DI-ANTALVIC [Concomitant]
     Indication: OSTEOARTHRITIS
     Dosage: 2UNIT THREE TIMES PER DAY
     Route: 048
     Dates: start: 20070112, end: 20070131
  6. COLTRAMYL [Concomitant]
     Indication: MYALGIA
     Dosage: 8MG TWICE PER DAY
     Route: 048
     Dates: start: 20070112, end: 20070122

REACTIONS (4)
  - CARDIAC ARREST [None]
  - GLYCOSYLATED HAEMOGLOBIN INCREASED [None]
  - MYOCARDIAL INFARCTION [None]
  - SUDDEN DEATH [None]
